FAERS Safety Report 5966883-9 (Version None)
Quarter: 2008Q4

REPORT INFORMATION
  Report Type: 
  Country: None (occurrence: None)
  Receive Date: 20081125
  Receipt Date: 20080922
  Transmission Date: 20090506
  Serious: No
  Sender: FDA-Public Use
  Company Number: US-AMGEN-KDL309077

PATIENT
  Sex: Female

DRUGS (2)
  1. ENBREL [Suspect]
     Indication: RHEUMATOID ARTHRITIS
     Route: 058
     Dates: start: 20080710
  2. ARAVA [Concomitant]

REACTIONS (4)
  - DIARRHOEA [None]
  - INFLUENZA LIKE ILLNESS [None]
  - RHEUMATOID ARTHRITIS [None]
  - VOMITING [None]
